FAERS Safety Report 18806331 (Version 2)
Quarter: 2022Q1

REPORT INFORMATION
  Report Type: Spontaneous
  Country: US (occurrence: US)
  Receive Date: 20210128
  Receipt Date: 20220120
  Transmission Date: 20220423
  Serious: No
  Sender: FDA-Public Use
  Company Number: ENDG20-08581

PATIENT
  Sex: Female

DRUGS (1)
  1. PERCOCET [Suspect]
     Active Substance: ACETAMINOPHEN\OXYCODONE HYDROCHLORIDE
     Indication: Pain
     Dosage: UNK MG, UNKNOWN
     Route: 065
     Dates: start: 20201104

REACTIONS (2)
  - Product substitution issue [Not Recovered/Not Resolved]
  - Drug ineffective [Not Recovered/Not Resolved]

NARRATIVE: CASE EVENT DATE: 20201104
